FAERS Safety Report 6480516-7 (Version None)
Quarter: 2009Q4

REPORT INFORMATION
  Report Type: 
  Country: None (occurrence: None)
  Receive Date: 20091208
  Receipt Date: 20091202
  Transmission Date: 20100525
  Serious: Yes (Hospitalization)
  Sender: FDA-Public Use
  Company Number: JP-BAYER-200914785BYL

PATIENT
  Age: 56 Year
  Sex: Male
  Weight: 64 kg

DRUGS (5)
  1. NEXAVAR [Suspect]
     Indication: HEPATIC NEOPLASM MALIGNANT
     Dosage: TOTAL DAILY DOSE: 800 MG  UNIT DOSE: 200 MG
     Route: 048
     Dates: start: 20090603, end: 20090626
  2. SELBEX [Concomitant]
     Indication: GASTRITIS PROPHYLAXIS
     Dosage: UNIT DOSE: 50 MG
     Route: 048
     Dates: end: 20090626
  3. DEPAS [Concomitant]
     Indication: INSOMNIA
     Dosage: UNIT DOSE: 0.5 MG
     Route: 048
     Dates: end: 20090626
  4. SOLANAX [Concomitant]
     Indication: INSOMNIA
     Dosage: UNIT DOSE: 0.4 MG
     Route: 048
     Dates: end: 20090602
  5. VOLTAREN [Concomitant]
     Dosage: UNIT DOSE: 75 MG
     Dates: end: 20090706

REACTIONS (2)
  - HEPATIC FUNCTION ABNORMAL [None]
  - PALMAR-PLANTAR ERYTHRODYSAESTHESIA SYNDROME [None]
